FAERS Safety Report 13195863 (Version 1)
Quarter: 2017Q1

REPORT INFORMATION
  Report Type: Spontaneous
  Country: US (occurrence: US)
  Receive Date: 20170207
  Receipt Date: 20170207
  Transmission Date: 20170428
  Serious: Yes (Disabling)
  Sender: FDA-Public Use
  Company Number: None

PATIENT
  Age: 44 Year
  Sex: Female
  Weight: 59.4 kg

DRUGS (10)
  1. HARVONI [Suspect]
     Active Substance: LEDIPASVIR\SOFOSBUVIR
     Indication: HEPATITIS C
     Route: 048
     Dates: start: 20150420, end: 20150720
  2. VIT B [Concomitant]
     Active Substance: VITAMIN B
  3. NORVIR [Concomitant]
     Active Substance: RITONAVIR
  4. FISH OIL [Concomitant]
     Active Substance: FISH OIL
  5. VIREAD [Concomitant]
     Active Substance: TENOFOVIR DISOPROXIL FUMARATE
  6. MVI [Concomitant]
     Active Substance: VITAMINS
  7. CALCIUM [Concomitant]
     Active Substance: CALCIUM
  8. REYATAZ [Concomitant]
     Active Substance: ATAZANAVIR SULFATE
  9. TART CHERRY JUICE [Concomitant]
  10. ISSENTRESS [Concomitant]

REACTIONS (23)
  - Disturbance in attention [None]
  - Balance disorder [None]
  - Impaired work ability [None]
  - Paranoia [None]
  - Nervous system disorder [None]
  - Hallucinations, mixed [None]
  - Dysgraphia [None]
  - Bone pain [None]
  - Reading disorder [None]
  - Anxiety [None]
  - Mood altered [None]
  - Abulia [None]
  - Dysarthria [None]
  - Activities of daily living impaired [None]
  - Cognitive disorder [None]
  - Depression [None]
  - Fall [None]
  - Arthralgia [None]
  - Insomnia [None]
  - Personality change [None]
  - Memory impairment [None]
  - Aphasia [None]
  - Pain [None]

NARRATIVE: CASE EVENT DATE: 20150720
